FAERS Safety Report 4282151-8 (Version None)
Quarter: 2004Q1

REPORT INFORMATION
  Report Type: 
  Country: None (occurrence: None)
  Receive Date: 20040123
  Receipt Date: 20030729
  Transmission Date: 20041129
  Serious: Yes (Hospitalization)
  Sender: FDA-Public Use
  Company Number: 2003160591US

PATIENT
  Age: 47 Year
  Sex: Male
  Weight: 87.0906 kg

DRUGS (4)
  1. FLAGYL I.V. [Suspect]
     Indication: DIARRHOEA
     Dosage: 500 MG, QID, IV
     Route: 042
     Dates: start: 20030512, end: 20030515
  2. CELEBREX [Concomitant]
  3. ORPHENADRINE CITRATE [Concomitant]
  4. CIPRO (CIPROLFOXACIN HYDROCHLORIDE) [Concomitant]

REACTIONS (3)
  - CONFUSIONAL STATE [None]
  - CONVULSION [None]
  - DISORIENTATION [None]
